FAERS Safety Report 5710325-5 (Version None)
Quarter: 2008Q2

REPORT INFORMATION
  Report Type: 
  Country: None (occurrence: None)
  Receive Date: 20080418
  Receipt Date: 20080408
  Transmission Date: 20081010
  Serious: Yes (Other)
  Sender: FDA-Public Use
  Company Number: CA-PFIZER INC-2008031179

PATIENT
  Sex: Female

DRUGS (1)
  1. CHAMPIX [Suspect]
     Route: 048

REACTIONS (4)
  - ABNORMAL BEHAVIOUR [None]
  - AGITATION [None]
  - HOMICIDAL IDEATION [None]
  - SUICIDAL IDEATION [None]
